FAERS Safety Report 8255952-9 (Version None)
Quarter: 2012Q2

REPORT INFORMATION
  Report Type: 
  Country: None (occurrence: None)
  Receive Date: 20120403
  Receipt Date: 20120401
  Transmission Date: 20120825
  Serious: Yes (Other)
  Sender: FDA-Public Use
  Company Number: CN-ROCHE-1050714

PATIENT
  Age: 46 Year
  Sex: Female

DRUGS (3)
  1. RIBAVIRIN (NON-ROCHE/NON-COMPARATOR) [Concomitant]
     Indication: HEPATITIS C
     Route: 048
     Dates: start: 20111208, end: 20120301
  2. PEGASYS [Suspect]
     Indication: HEPATITIS C
     Route: 058
     Dates: start: 20111208, end: 20120201
  3. PEGASYS [Suspect]
     Route: 058
     Dates: start: 20120201, end: 20120301

REACTIONS (3)
  - WHITE BLOOD CELL COUNT DECREASED [None]
  - HYPERTHYROIDISM [None]
  - BLOOD GLUCOSE INCREASED [None]
